FAERS Safety Report 10160431 (Version 1)
Quarter: 2014Q2

REPORT INFORMATION
  Report Type: Spontaneous
  Country: FR (occurrence: FR)
  Receive Date: 20140508
  Receipt Date: 20140508
  Transmission Date: 20141212
  Serious: Yes (Hospitalization)
  Sender: FDA-Public Use
  Company Number: FR-ELI_LILLY_AND_COMPANY-FR201404009336

PATIENT
  Age: 65 Year
  Sex: Male

DRUGS (9)
  1. ALIMTA [Suspect]
     Indication: NON-SMALL CELL LUNG CANCER
     Dosage: 940 MG, UNKNOWN
     Route: 042
     Dates: start: 20140312, end: 20140312
  2. CISPLATINE [Suspect]
     Indication: NON-SMALL CELL LUNG CANCER
     Dosage: 140 MG, UNKNOWN
     Route: 042
     Dates: start: 20140312, end: 20140312
  3. SPECIAFOLDINE [Concomitant]
     Dosage: 0.4 MG, QD
     Dates: start: 201403
  4. PANTOPRAZOLE [Concomitant]
     Dosage: 20 MG, QD
  5. PERMIXON [Concomitant]
     Dosage: 160 MG, BID
  6. FORMARE [Concomitant]
     Dosage: 12 UG, BID
  7. ATARAX                             /00058401/ [Concomitant]
     Dosage: 37.5 MG, QD
  8. TELMISARTAN [Concomitant]
     Dosage: 40 MG, QD
  9. SOLUPRED                           /00016201/ [Concomitant]
     Dosage: UNK
     Dates: start: 20140311, end: 20140313

REACTIONS (5)
  - Diarrhoea [Recovered/Resolved]
  - Vomiting [Recovered/Resolved]
  - Abdominal pain upper [Recovered/Resolved]
  - Dyspnoea [Recovered/Resolved]
  - Hypokalaemia [Recovered/Resolved]
